FAERS Safety Report 14258549 (Version 1)
Quarter: 2017Q4

REPORT INFORMATION
  Report Type: Spontaneous
  Country: JE (occurrence: JE)
  Receive Date: 20171205
  Receipt Date: 20171205
  Transmission Date: 20180321
  Serious: Yes (Disabling)
  Sender: FDA-Public Use
  Company Number: None

PATIENT
  Age: 37 Year
  Sex: Female
  Weight: 56.7 kg

DRUGS (6)
  1. ANTIHISTAMINES [Concomitant]
     Active Substance: ANTIHISTAMINES NOS
  2. PROTOPIC [Concomitant]
     Active Substance: TACROLIMUS
  3. FOOD STATE SUPPLEMENTS [Concomitant]
  4. ORAL STEROIDS [Suspect]
     Active Substance: UNSPECIFIED INGREDIENT
     Indication: ECZEMA
     Route: 061
  5. BETNOVATE [Suspect]
     Active Substance: BETAMETHASONE
     Indication: ECZEMA
  6. PAIN KILLERS [Concomitant]
     Active Substance: UNSPECIFIED INGREDIENT

REACTIONS (21)
  - Malaise [None]
  - Depression [None]
  - Condition aggravated [None]
  - Burning sensation [None]
  - Skin exfoliation [None]
  - Insomnia [None]
  - Suicidal ideation [None]
  - Vision blurred [None]
  - Loss of personal independence in daily activities [None]
  - Viral infection [None]
  - Peripheral swelling [None]
  - Fatigue [None]
  - Impaired work ability [None]
  - Skin disorder [None]
  - Quality of life decreased [None]
  - Weight decreased [None]
  - Pain [None]
  - Erythema [None]
  - Steroid withdrawal syndrome [None]
  - Pruritus [None]
  - Swelling face [None]

NARRATIVE: CASE EVENT DATE: 20141001
